FAERS Safety Report 15472176 (Version 1)
Quarter: 2018Q4

REPORT INFORMATION
  Report Type: Report from Study
  Country: None (occurrence: TN)
  Receive Date: 20181008
  Receipt Date: 20181008
  Transmission Date: 20190205
  Serious: Yes (Hospitalization)
  Sender: FDA-Public Use
  Company Number: TN-ABBVIE-18K-160-2509713-00

PATIENT
  Sex: Female

DRUGS (1)
  1. HUMIRA [Suspect]
     Active Substance: ADALIMUMAB
     Indication: CROHN^S DISEASE
     Route: 058
     Dates: start: 20170104, end: 201801

REACTIONS (8)
  - Decreased appetite [Recovered/Resolved]
  - Diarrhoea haemorrhagic [Recovered/Resolved]
  - Fatigue [Recovered/Resolved]
  - Syncope [Recovered/Resolved]
  - Skin exfoliation [Recovered/Resolved]
  - Weight decreased [Recovered/Resolved]
  - Gastrointestinal inflammation [Recovered/Resolved]
  - Vomiting [Recovered/Resolved]

NARRATIVE: CASE EVENT DATE: 2018
